FAERS Safety Report 10932124 (Version 1)
Quarter: 2015Q1

REPORT INFORMATION
  Report Type: Spontaneous
  Country: US (occurrence: None)
  Receive Date: 20150225
  Receipt Date: 20150225
  Transmission Date: 20150721
  Serious: Yes (Hospitalization)
  Sender: FDA-Public Use
  Company Number: 2014-US-007257

PATIENT
  Age: 45 Year
  Sex: Female

DRUGS (3)
  1. FENTANYL (FENTANYL CITRATE) [Suspect]
     Active Substance: FENTANYL CITRATE
     Indication: PAIN
     Dosage: 20.83 UG, QH, INTHRATHECAL
     Route: 037
  2. PRIALT [Suspect]
     Active Substance: ZICONOTIDE ACETATE
     Indication: PAIN
     Route: 037
  3. CLONIDINE. [Suspect]
     Active Substance: CLONIDINE
     Indication: PAIN
     Route: 037

REACTIONS (6)
  - Hallucination [None]
  - Gait disturbance [None]
  - Pain [None]
  - Device issue [None]
  - Renal failure [None]
  - Urinary incontinence [None]

NARRATIVE: CASE EVENT DATE: 201301
